FAERS Safety Report 8358229-6 (Version None)
Quarter: 2012Q2

REPORT INFORMATION
  Report Type: 
  Country: None (occurrence: None)
  Receive Date: 20120514
  Receipt Date: 20120508
  Transmission Date: 20120825
  Serious: Yes (Hospitalization)
  Sender: FDA-Public Use
  Company Number: JP-GLAXOSMITHKLINE-B0798665A

PATIENT
  Sex: Female

DRUGS (4)
  1. LANSOPRAZOLE [Suspect]
     Indication: PRODUCT USED FOR UNKNOWN INDICATION
     Route: 065
     Dates: start: 20120409, end: 20120413
  2. PREDNISOLONE [Concomitant]
     Route: 065
     Dates: start: 20120409, end: 20120413
  3. VITAMIN B12 [Concomitant]
     Route: 065
     Dates: start: 20120409, end: 20120413
  4. VALTREX [Suspect]
     Indication: VIITH NERVE PARALYSIS
     Dosage: 3000MG PER DAY
     Route: 048
     Dates: start: 20120409, end: 20120413

REACTIONS (4)
  - ERYTHEMA [None]
  - STEVENS-JOHNSON SYNDROME [None]
  - EYE DISCHARGE [None]
  - OCULAR HYPERAEMIA [None]
